FAERS Safety Report 5303325-0 (Version None)
Quarter: 2007Q2

REPORT INFORMATION
  Report Type: 
  Country: None (occurrence: None)
  Receive Date: 20070420
  Receipt Date: 20070412
  Transmission Date: 20071010
  Serious: Yes (Other)
  Sender: FDA-Public Use
  Company Number: GB-GLAXOSMITHKLINE-B0467070A

PATIENT
  Age: 69 Year
  Sex: Female
  Weight: 76 kg

DRUGS (5)
  1. AVANDIA [Suspect]
     Dosage: 4MG PER DAY
     Route: 048
     Dates: start: 20040601, end: 20070301
  2. ATORVASTATIN CALCIUM [Concomitant]
     Route: 048
     Dates: start: 20051201
  3. FRUSEMIDE [Concomitant]
     Dosage: 40MG TWICE PER DAY
     Route: 048
     Dates: start: 20051201
  4. GLUCOPHAGE [Concomitant]
  5. GLUCOPHAGE [Concomitant]
     Route: 048

REACTIONS (3)
  - FOOT FRACTURE [None]
  - HAND FRACTURE [None]
  - OSTEOPOROSIS [None]
